FAERS Safety Report 21529012 (Version 2)
Quarter: 2022Q4

REPORT INFORMATION
  Report Type: Spontaneous
  Country: AU (occurrence: None)
  Receive Date: 20221031
  Receipt Date: 20221115
  Transmission Date: 20230113
  Serious: Yes (Other)
  Sender: FDA-Public Use
  Company Number: AU-ROCHE-3207447

PATIENT
  Sex: Female

DRUGS (1)
  1. XELODA [Suspect]
     Active Substance: CAPECITABINE
     Indication: Triple negative breast cancer
     Dosage: ADJUVANT XELODA FOR 6 MONTHS (LAST CYCLE MARCH 2022)
     Route: 048

REACTIONS (4)
  - Cancer pain [Unknown]
  - Maternal exposure before pregnancy [Unknown]
  - Abortion induced [Unknown]
  - Injury [Unknown]
